FAERS Safety Report 7197540-1 (Version None)
Quarter: 2010Q4

REPORT INFORMATION
  Report Type: 
  Country: None (occurrence: None)
  Receive Date: 20101213
  Receipt Date: 20101126
  Transmission Date: 20110411
  Serious: Yes (Hospitalization)
  Sender: FDA-Public Use
  Company Number: AUR-APL-2010-02992

PATIENT
  Age: 45 Year
  Sex: Male

DRUGS (6)
  1. FLUOXETINE [Suspect]
     Dosage: 20MG
  2. ARIPIPRAZOLE [Suspect]
     Dosage: 15MG-DAILY
  3. DENZAPINE [Suspect]
     Indication: SCHIZOPHRENIA
     Dosage: 100MG-BID-ORAL
     Route: 048
     Dates: start: 20030901
  4. LACTULOSE [Concomitant]
  5. METFORMIN HCL [Concomitant]
  6. ROSIGLITAZONE [Concomitant]

REACTIONS (2)
  - DIZZINESS [None]
  - SYNCOPE [None]
